FAERS Safety Report 8163766-3 (Version None)
Quarter: 2012Q1

REPORT INFORMATION
  Report Type: 
  Country: None (occurrence: None)
  Receive Date: 20120224
  Receipt Date: 20120216
  Transmission Date: 20120608
  Serious: Yes (Hospitalization)
  Sender: FDA-Public Use
  Company Number: PHHY2011FR107232

PATIENT
  Age: 50 Year
  Sex: Male
  Weight: 77 kg

DRUGS (5)
  1. ULTRA LEVURA [Concomitant]
     Dosage: UNK
     Dates: start: 20111021, end: 20111029
  2. PYOSTACINE [Concomitant]
     Dosage: 2 DF, BID
     Route: 048
     Dates: start: 20111021, end: 20111029
  3. OSLIF BREEZHALER [Suspect]
     Indication: CHRONIC OBSTRUCTIVE PULMONARY DISEASE
     Dosage: 1 DF, QD
     Dates: start: 20111021, end: 20111022
  4. OSLIF BREEZHALER [Suspect]
     Indication: BRONCHIAL DISORDER
  5. ACETAMINOPHEN [Concomitant]
     Dosage: 1 DF, TID
     Route: 048
     Dates: start: 20111021, end: 20111023

REACTIONS (4)
  - MALAISE [None]
  - CHEST PAIN [None]
  - PALPITATIONS [None]
  - CHEST DISCOMFORT [None]
